FAERS Safety Report 8071388-8 (Version None)
Quarter: 2012Q1

REPORT INFORMATION
  Report Type: 
  Country: None (occurrence: None)
  Receive Date: 20120119
  Receipt Date: 20120116
  Transmission Date: 20120608
  Serious: Yes (Life-Threatening)
  Sender: FDA-Public Use
  Company Number: GER/UKI/12/0022659

PATIENT
  Age: 53 Year
  Sex: Female

DRUGS (8)
  1. FERROUS FUMARATE [Concomitant]
  2. METFORMIN HCL [Concomitant]
  3. DOMPERIDONE (DOMPERIDONE) [Concomitant]
  4. OMEPRAZOLE [Suspect]
     Indication: PRODUCT USED FOR UNKNOWN INDICATION
     Dosage: 10 MG, 1 IN 1 D, ORAL
     Route: 048
  5. AMITRIPTYLINE HCL [Concomitant]
  6. CLENIL MODULITE (BECLOMETASONE DIPROPIONATE) [Concomitant]
  7. ATORVASTATIN [Concomitant]
  8. SERTRALINE HYDROCHLORIDE [Concomitant]

REACTIONS (2)
  - LEUKOPENIA [None]
  - THROMBOCYTOPENIA [None]
